FAERS Safety Report 25390391 (Version 1)
Quarter: 2025Q2

REPORT INFORMATION
  Report Type: Spontaneous
  Country: US (occurrence: US)
  Receive Date: 20250603
  Receipt Date: 20250603
  Transmission Date: 20250717
  Serious: Yes (Other)
  Sender: DOMPE FARMACEUTICI
  Company Number: US-FARMAPROD-202501-0311

PATIENT
  Sex: Male

DRUGS (1)
  1. OXERVATE [Suspect]
     Active Substance: CENEGERMIN-BKBJ
     Indication: Glaucoma
     Route: 047

REACTIONS (4)
  - Ulcerative keratitis [Unknown]
  - Conjunctival thinning [Unknown]
  - Off label use [Unknown]
  - Visual acuity reduced [Unknown]
